FAERS Safety Report 6121112-0 (Version None)
Quarter: 2009Q1

REPORT INFORMATION
  Report Type: 
  Country: None (occurrence: None)
  Receive Date: 20090317
  Receipt Date: 20090306
  Transmission Date: 20090719
  Serious: Yes (Hospitalization)
  Sender: FDA-Public Use
  Company Number: A0752687A

PATIENT
  Age: 55 Year
  Sex: Male
  Weight: 86.4 kg

DRUGS (6)
  1. AVANDIA [Suspect]
     Dosage: 4MG PER DAY
     Route: 048
     Dates: start: 20020306, end: 20070310
  2. METFORMIN HCL [Concomitant]
  3. AMARYL [Concomitant]
  4. GLUCOTROL [Concomitant]
  5. LIPITOR [Concomitant]
  6. LISINOPRIL [Concomitant]

REACTIONS (3)
  - ARTERIOSCLEROSIS CORONARY ARTERY [None]
  - CORONARY ARTERY DISEASE [None]
  - MYOCARDIAL INFARCTION [None]
